FAERS Safety Report 8139137-2 (Version None)
Quarter: 2012Q1

REPORT INFORMATION
  Report Type: 
  Country: None (occurrence: None)
  Receive Date: 20120215
  Receipt Date: 20120207
  Transmission Date: 20120608
  Serious: Yes (Hospitalization, Disabling, Other)
  Sender: FDA-Public Use
  Company Number: US-MERCK-1106USA02743

PATIENT
  Age: 48 Year
  Sex: Female

DRUGS (11)
  1. FOSAMAX [Suspect]
     Indication: OSTEOPOROSIS
     Route: 048
     Dates: start: 19970801, end: 20100301
  2. FOSAMAX [Suspect]
     Indication: OSTEOPENIA
     Route: 048
     Dates: start: 19970801, end: 20100301
  3. CORTICOSTEROIDS (UNSPECIFIED) [Concomitant]
     Indication: SKIN DISORDER
     Route: 065
     Dates: start: 19860101, end: 20070101
  4. FOSAMAX [Suspect]
     Route: 048
     Dates: start: 20010901
  5. PREDNISONE [Concomitant]
     Indication: SKIN DISORDER
     Route: 065
     Dates: start: 19860101, end: 20070101
  6. CYANOCOBALAMIN [Concomitant]
     Indication: CROHN'S DISEASE
     Route: 065
     Dates: start: 19930101
  7. FOSAMAX [Suspect]
     Route: 048
     Dates: start: 19971006
  8. FOSAMAX [Suspect]
     Route: 048
     Dates: start: 19971006
  9. FOSAMAX [Suspect]
     Route: 048
     Dates: start: 20010901
  10. CLIMARA [Concomitant]
     Indication: HORMONE THERAPY
     Route: 065
     Dates: start: 19950101, end: 20100101
  11. ALENDRONATE SODIUM [Suspect]
     Route: 065
     Dates: start: 20080401

REACTIONS (30)
  - SPONDYLITIS [None]
  - HIATUS HERNIA [None]
  - SKIN PAPILLOMA [None]
  - VITAMIN D DEFICIENCY [None]
  - BONE DENSITY DECREASED [None]
  - BREAST ADENOMA [None]
  - TOOTH IMPACTED [None]
  - APPENDIX DISORDER [None]
  - ABSCESS LIMB [None]
  - IRON DEFICIENCY ANAEMIA [None]
  - HYPERCHOLESTEROLAEMIA [None]
  - DEPRESSION [None]
  - FUNCTIONAL GASTROINTESTINAL DISORDER [None]
  - INTESTINAL OBSTRUCTION [None]
  - KYPHOSIS [None]
  - LIMB INJURY [None]
  - SPONDYLOARTHROPATHY [None]
  - FEMUR FRACTURE [None]
  - GASTROOESOPHAGEAL REFLUX DISEASE [None]
  - GASTROINTESTINAL HAEMORRHAGE [None]
  - URINARY TRACT INFECTION [None]
  - FATIGUE [None]
  - ARTHRITIS [None]
  - SPINAL COMPRESSION FRACTURE [None]
  - SACROILIITIS [None]
  - FALL [None]
  - CROHN'S DISEASE [None]
  - FUNGAL INFECTION [None]
  - CALCIUM DEFICIENCY [None]
  - ANXIETY [None]
